FAERS Safety Report 15621811 (Version 1)
Quarter: 2018Q4

REPORT INFORMATION
  Report Type: Spontaneous
  Country: US (occurrence: US)
  Receive Date: 20181112
  Receipt Date: 20181112
  Transmission Date: 20190205
  Serious: Yes (Death)
  Sender: FDA-Public Use
  Company Number: None

PATIENT
  Age: 69 Year
  Sex: Male

DRUGS (11)
  1. NOVOLIN [Concomitant]
     Active Substance: INSULIN HUMAN
  2. NIFEDIPINE. [Concomitant]
     Active Substance: NIFEDIPINE
  3. HYDRALAZINE [Concomitant]
     Active Substance: HYDRALAZINE HYDROCHLORIDE
  4. VITAMIN B12 [Concomitant]
     Active Substance: CYANOCOBALAMIN
  5. MULTIVITAMIN [Concomitant]
     Active Substance: VITAMINS
  6. BUMETANIDE. [Concomitant]
     Active Substance: BUMETANIDE
  7. METOPROLOL. [Concomitant]
     Active Substance: METOPROLOL
  8. PROBIOTIC [Concomitant]
     Active Substance: PROBIOTICS NOS
  9. VELTASSA [Suspect]
     Active Substance: PATIROMER
     Indication: HYPERKALAEMIA
     Route: 048
     Dates: start: 20180904
  10. ELIQUIS [Concomitant]
     Active Substance: APIXABAN
  11. VITAMIN D3 [Concomitant]
     Active Substance: CHOLECALCIFEROL

REACTIONS (1)
  - Death [None]

NARRATIVE: CASE EVENT DATE: 20181026
